FAERS Safety Report 23210321 (Version 1)
Quarter: 2023Q4

REPORT INFORMATION
  Report Type: Spontaneous
  Country: FR (occurrence: FR)
  Receive Date: 20231121
  Receipt Date: 20231121
  Transmission Date: 20240110
  Serious: Yes (Other)
  Sender: FDA-Public Use
  Company Number: None

PATIENT
  Age: 26 Year
  Sex: Female
  Weight: 80 kg

DRUGS (8)
  1. ONDANSETRON [Suspect]
     Active Substance: ONDANSETRON
     Indication: Prophylaxis of nausea and vomiting
     Dates: start: 20211231, end: 20211231
  2. CEFAZOLIN [Suspect]
     Active Substance: CEFAZOLIN
     Indication: Antibiotic prophylaxis
     Dates: start: 20211231, end: 20211231
  3. KETOPROFEN [Suspect]
     Active Substance: KETOPROFEN
     Indication: Pain
     Dates: start: 20211231, end: 20220101
  4. MORPHINE [Suspect]
     Active Substance: MORPHINE
     Indication: Epidural anaesthesia
     Dates: start: 20211231, end: 20211231
  5. SYNTOCINON [Suspect]
     Active Substance: OXYTOCIN
     Indication: Caesarean section
     Dates: start: 20211231, end: 20211231
  6. SUFENTANIL [Suspect]
     Active Substance: SUFENTANIL
     Indication: Epidural anaesthesia
     Dates: start: 20211231, end: 20211231
  7. ACETAMINOPHEN [Concomitant]
     Active Substance: ACETAMINOPHEN
  8. XYLOCAINE [Concomitant]
     Active Substance: LIDOCAINE HYDROCHLORIDE

REACTIONS (1)
  - Acute generalised exanthematous pustulosis [Recovered/Resolved]

NARRATIVE: CASE EVENT DATE: 20211231
